FAERS Safety Report 11003399 (Version 1)
Quarter: 2015Q2

REPORT INFORMATION
  Report Type: Spontaneous
  Country: US (occurrence: None)
  Receive Date: 20150408
  Receipt Date: 20150408
  Transmission Date: 20150821
  Serious: Yes (Hospitalization)
  Sender: FDA-Public Use
  Company Number: None

PATIENT
  Age: 59 Year
  Sex: Female
  Weight: 90.72 kg

DRUGS (27)
  1. BACLOFEN. [Concomitant]
     Active Substance: BACLOFEN
  2. LAMICTAL [Concomitant]
     Active Substance: LAMOTRIGINE
  3. COMBIVENT [Concomitant]
     Active Substance: ALBUTEROL SULFATE\IPRATROPIUM BROMIDE
  4. MULTIVITAMIN [Concomitant]
     Active Substance: VITAMINS
  5. PRAVACHOL [Concomitant]
     Active Substance: PRAVASTATIN SODIUM
  6. GILENYA [Suspect]
     Active Substance: FINGOLIMOD HYDROCHLORIDE
     Indication: MULTIPLE SCLEROSIS
     Dosage: 1 CAPSULE
     Route: 048
     Dates: start: 20150128, end: 20150331
  7. RED YEAST RICE [Concomitant]
     Active Substance: DIETARY SUPPLEMENT
  8. PROCTOCORT [Concomitant]
     Active Substance: HYDROCORTISONE
  9. CALCIUM WITH VITAMIN D [Concomitant]
     Active Substance: CALCIUM\VITAMIN D
  10. ZYRTEC D ALLERGY AND CONGESTION [Concomitant]
     Active Substance: CETIRIZINE HYDROCHLORIDE\PSEUDOEPHEDRINE HYDROCHLORIDE
  11. SENNA [Concomitant]
     Active Substance: SENNA LEAF\SENNOSIDES\SENNOSIDES A AND B
  12. TOPROL (METOPROLOL) [Concomitant]
  13. WELLBUTRIN [Concomitant]
     Active Substance: BUPROPION HYDROCHLORIDE
  14. PRILOSEC (OMAPRAZOLE) [Concomitant]
  15. OXYBUTYNIN ER (DITROPEN) [Concomitant]
  16. ADVAIR HFA [Concomitant]
     Active Substance: FLUTICASONE PROPIONATE\SALMETEROL XINAFOATE
  17. NITROQUICK [Concomitant]
     Active Substance: NITROGLYCERIN
  18. ALLEGRA [Concomitant]
     Active Substance: FEXOFENADINE HYDROCHLORIDE
  19. REQUIP [Concomitant]
     Active Substance: ROPINIROLE HYDROCHLORIDE
  20. RESTASIS [Concomitant]
     Active Substance: CYCLOSPORINE
  21. FIDH OIL [Concomitant]
  22. IBUPROFEN. [Concomitant]
     Active Substance: IBUPROFEN
  23. HYDROCODONE (VICODIN) [Concomitant]
  24. ZOFRAN [Concomitant]
     Active Substance: ONDANSETRON HYDROCHLORIDE
  25. LIDODERM [Concomitant]
     Active Substance: LIDOCAINE
  26. ALEVE [Concomitant]
     Active Substance: NAPROXEN SODIUM
  27. VITAMIN D [Concomitant]
     Active Substance: CHOLECALCIFEROL

REACTIONS (10)
  - Oedema peripheral [None]
  - Fluid retention [None]
  - Rash erythematous [None]
  - Wheezing [None]
  - Generalised oedema [None]
  - Palpitations [None]
  - Blood pressure decreased [None]
  - Weight increased [None]
  - Restrictive pulmonary disease [None]
  - Ventricular extrasystoles [None]

NARRATIVE: CASE EVENT DATE: 20150401
